FAERS Safety Report 23800504 (Version 1)
Quarter: 2024Q2

REPORT INFORMATION
  Report Type: Spontaneous
  Country: PT (occurrence: ES)
  Receive Date: 20240430
  Receipt Date: 20240430
  Transmission Date: 20240716
  Serious: Yes (Other)
  Sender: FDA-Public Use
  Company Number: None

PATIENT

DRUGS (4)
  1. ESLICARBAZEPINE ACETATE [Interacting]
     Active Substance: ESLICARBAZEPINE ACETATE
     Indication: Product used for unknown indication
     Dosage: 1200 MILLIGRAM, QD
     Route: 048
     Dates: start: 20190726
  2. VIMPAT [Interacting]
     Active Substance: LACOSAMIDE
     Indication: Petit mal epilepsy
     Dosage: 150 MILLIGRAM, BID
     Route: 048
     Dates: start: 20231123, end: 20240102
  3. CENOBAMATE [Interacting]
     Active Substance: CENOBAMATE
     Indication: Petit mal epilepsy
     Dosage: 200 MILLIGRAM, QD (2 NOCHE)
     Route: 048
     Dates: start: 20231123
  4. ESOMEPRAZOLE [Concomitant]
     Active Substance: ESOMEPRAZOLE
     Indication: Gastrooesophageal reflux disease
     Dosage: UNK, BID
     Route: 048
     Dates: start: 20181204

REACTIONS (2)
  - Petit mal epilepsy [Not Recovered/Not Resolved]
  - Drug ineffective [Not Recovered/Not Resolved]

NARRATIVE: CASE EVENT DATE: 20240101
